FAERS Safety Report 22180141 (Version 1)
Quarter: 2023Q2

REPORT INFORMATION
  Report Type: Other
  Country: SG (occurrence: None)
  Receive Date: 20230406
  Receipt Date: 20230406
  Transmission Date: 20230722
  Serious: Yes (Hospitalization, Other)
  Sender: FDA-Public Use
  Company Number: SG-ROCHE-3321033

PATIENT
  Age: 82 Year
  Sex: Female

DRUGS (1)
  1. MABTHERA [Suspect]
     Active Substance: RITUXIMAB
     Indication: Diffuse large B-cell lymphoma
     Route: 058

REACTIONS (4)
  - General physical health deterioration [Unknown]
  - Syncope [Unknown]
  - Asthenia [Unknown]
  - COVID-19 [Unknown]
